FAERS Safety Report 7288642-X (Version None)
Quarter: 2011Q1

REPORT INFORMATION
  Report Type: 
  Country: None (occurrence: None)
  Receive Date: 20110211
  Receipt Date: 20110209
  Transmission Date: 20110831
  Serious: Yes (Other)
  Sender: FDA-Public Use
  Company Number: US-PFIZER INC-2011029569

PATIENT
  Sex: Female

DRUGS (7)
  1. CALAN [Suspect]
     Indication: HYPERTENSION
     Dosage: 360 MG, 2X/DAY
     Route: 048
  2. MAGNESIUM [Concomitant]
     Dosage: UNK
  3. CALCIUM [Concomitant]
     Dosage: UNK
  4. LOPRESSOR [Concomitant]
     Dosage: UNK
  5. ZANTAC [Concomitant]
     Dosage: UNK
  6. ATACAND [Concomitant]
     Dosage: UNK
  7. FUROSEMIDE [Concomitant]
     Indication: POLYURIA
     Dosage: UNK

REACTIONS (2)
  - INTERVERTEBRAL DISC DISORDER [None]
  - ROAD TRAFFIC ACCIDENT [None]
